FAERS Safety Report 4348503-2 (Version None)
Quarter: 2004Q2

REPORT INFORMATION
  Report Type: 
  Country: None (occurrence: None)
  Receive Date: 20040422
  Receipt Date: 20040401
  Transmission Date: 20050107
  Serious: Yes (Death)
  Sender: FDA-Public Use
  Company Number: EWC040438767

PATIENT
  Age: 54 Year
  Sex: Male

DRUGS (1)
  1. TADALAFIL [Suspect]
     Indication: ERECTILE DYSFUNCTION

REACTIONS (1)
  - OEDEMA [None]
